FAERS Safety Report 8887253 (Version 4)
Quarter: 2013Q1

REPORT INFORMATION
  Report Type: Report from Study
  Country: DE (occurrence: DE)
  Receive Date: 20121101
  Receipt Date: 20130322
  Transmission Date: 20140127
  Serious: Yes (Death, Life-Threatening, Hospitalization)
  Sender: FDA-Public Use
  Company Number: DE-ROCHE-1100071

PATIENT
  Age: 51 Year
  Sex: Male
  Weight: 60.4 kg

DRUGS (45)
  1. BEVACIZUMAB [Suspect]
     Indication: BRAIN NEOPLASM MALIGNANT
     Dosage: LAST DOSE PRIOR TO SAE ON 02/AUG/2012. MOST RECENT DOSE PRIOR TO ASPERGILLOSIS: 18/JUL/2012.
     Route: 042
     Dates: end: 20120816
  2. TEMOZOLOMIDE [Suspect]
     Indication: BRAIN NEOPLASM MALIGNANT
     Dosage: LAST DOSE PRIOR TO SAE ON 10/JUN/2012
     Route: 048
     Dates: start: 20111109
  3. DEXAMETHASON [Concomitant]
     Route: 065
     Dates: start: 20111014, end: 20111111
  4. DEXAMETHASON [Concomitant]
     Route: 065
     Dates: start: 20111112, end: 20111113
  5. DEXAMETHASON [Concomitant]
     Route: 065
     Dates: start: 20111117, end: 20111124
  6. DEXAMETHASON [Concomitant]
     Route: 065
     Dates: start: 20111125, end: 20111207
  7. DEXAMETHASON [Concomitant]
     Route: 065
     Dates: start: 20111115, end: 20111116
  8. DEXAMETHASON [Concomitant]
     Route: 065
     Dates: start: 20120618, end: 201206
  9. DEXAMETHASON [Concomitant]
     Route: 065
     Dates: start: 201206, end: 20120621
  10. DEXAMETHASON [Concomitant]
     Route: 065
     Dates: start: 20120622, end: 20120703
  11. DEXAMETHASON [Concomitant]
     Route: 065
     Dates: start: 20120704, end: 20120717
  12. DEXAMETHASON [Concomitant]
     Route: 065
     Dates: start: 20120718, end: 20120731
  13. DEXAMETHASON [Concomitant]
     Route: 065
     Dates: start: 20120801, end: 20120816
  14. DEXAMETHASON [Concomitant]
     Route: 065
     Dates: start: 20120817, end: 201208
  15. KEPPRA [Concomitant]
     Route: 065
     Dates: start: 201109, end: 2011
  16. KEPPRA [Concomitant]
     Route: 065
     Dates: start: 20111108, end: 20111108
  17. KEPPRA [Concomitant]
     Route: 065
     Dates: start: 20111109, end: 20111109
  18. KEPPRA [Concomitant]
     Route: 065
     Dates: start: 20111110, end: 20111114
  19. KEPPRA [Concomitant]
     Route: 065
     Dates: start: 20111115, end: 20111118
  20. KEPPRA [Concomitant]
     Route: 065
     Dates: start: 20111119, end: 20111119
  21. KEPPRA [Concomitant]
     Route: 065
     Dates: start: 20111121, end: 20111123
  22. KEPPRA [Concomitant]
     Route: 065
     Dates: start: 20111124, end: 20111204
  23. KEPPRA [Concomitant]
     Route: 065
     Dates: start: 20111205, end: 20111205
  24. KEPPRA [Concomitant]
     Route: 065
     Dates: start: 20111206, end: 20111206
  25. KEPPRA [Concomitant]
     Route: 065
     Dates: start: 20111207, end: 2012
  26. PANTOZOL [Concomitant]
     Route: 065
     Dates: start: 201109, end: 2012
  27. SAB SIMPLEX [Concomitant]
     Dosage: 35 DROPS
     Route: 065
     Dates: start: 20111107, end: 20111110
  28. ONDANSETRON [Concomitant]
     Route: 065
     Dates: start: 20111109, end: 20111111
  29. COTRIM FORTE [Concomitant]
     Dosage: 320/1600/MG
     Route: 065
     Dates: start: 20111110, end: 20120102
  30. COTRIM FORTE [Concomitant]
     Route: 065
     Dates: start: 20120810
  31. MCP [Concomitant]
     Dosage: 20 DROPS
     Route: 065
     Dates: start: 20111111, end: 20111116
  32. MCP [Concomitant]
     Dosage: 5 ML
     Route: 065
     Dates: start: 20120119, end: 20120122
  33. MCP [Concomitant]
     Route: 065
     Dates: start: 20120215, end: 20120219
  34. NOVAMINSULFON [Concomitant]
     Route: 065
     Dates: start: 20120126, end: 20120126
  35. NOVAMINSULFON [Concomitant]
     Route: 065
     Dates: start: 20120127, end: 20120127
  36. FENISTIL [Concomitant]
     Route: 065
     Dates: start: 20120229, end: 20120305
  37. FENISTIL [Concomitant]
     Route: 065
     Dates: start: 20120308, end: 201206
  38. ZOFRAN [Concomitant]
     Route: 065
     Dates: start: 20120314, end: 20120318
  39. ZOFRAN [Concomitant]
     Route: 065
     Dates: start: 20120411, end: 20120415
  40. ZOFRAN [Concomitant]
     Route: 065
     Dates: start: 20120509, end: 20120513
  41. ZOFRAN [Concomitant]
     Route: 065
     Dates: start: 20120606, end: 20120610
  42. FUROSEMIDE [Concomitant]
     Route: 065
     Dates: start: 20120704, end: 20120704
  43. PREDNISONE [Concomitant]
     Route: 065
     Dates: start: 2012, end: 20120910
  44. PREDNISONE [Concomitant]
     Route: 065
     Dates: start: 20120907, end: 20120910
  45. PREDNISONE [Concomitant]
     Route: 065
     Dates: start: 20120911, end: 20120913

REACTIONS (5)
  - Aspergillus infection [Fatal]
  - Pneumothorax [Fatal]
  - Pulmonary fistula [Fatal]
  - Staphylococcal infection [Fatal]
  - Cardiovascular insufficiency [Recovered/Resolved]
